FAERS Safety Report 8890868 (Version 1)
Quarter: 2012Q4

REPORT INFORMATION
  Report Type: 
  Country: US (occurrence: US)
  Receive Date: 20121107
  Receipt Date: 20121107
  Transmission Date: 20130627
  Serious: Yes (Other)
  Sender: FDA-Public Use
  Company Number: US-BAYER-2012-115056

PATIENT
  Age: 62 Year
  Sex: Female

DRUGS (12)
  1. ACETYLSALICYLIC ACID({=100 MG) [Suspect]
     Indication: HEART DISEASE, UNSPECIFIED
     Dosage: 81 mg, QD
     Route: 048
     Dates: start: 2010
  2. PLAVIX [Interacting]
     Indication: HEART ATTACK
     Dosage: 75 mg, QD
     Route: 048
     Dates: start: 2006
  3. AFLIBERCEPT [Concomitant]
     Indication: DIABETIC MACULAR EDEMA
     Dosage: UNK
     Route: 031
     Dates: start: 20110811
  4. IBUPROFEN [Concomitant]
  5. PENTOXIFYLLINE [Concomitant]
  6. ATORVASTATIN [Concomitant]
     Dosage: UNK
     Dates: start: 2005
  7. CALCIUM [Concomitant]
  8. ESOMEPRAZOLE [Concomitant]
     Dosage: UNK
     Dates: start: 2005
  9. DIOVAN HCT [Concomitant]
     Dosage: UNK
     Dates: start: 2005
  10. METOPROLOL [Concomitant]
     Dosage: UNK
     Dates: start: 2010
  11. HUMALOG [Concomitant]
     Dosage: UNK
     Dates: start: 1995
  12. LANTUS [Concomitant]
     Dosage: UNK
     Dates: start: 1995

REACTIONS (5)
  - Lung disorder [None]
  - Seasonal allergy [None]
  - Cerebral haemorrhage [Recovered/Resolved]
  - Fall [None]
  - Drug interaction [Not Recovered/Not Resolved]
